FAERS Safety Report 23055345 (Version 1)
Quarter: 2023Q4

REPORT INFORMATION
  Report Type: Spontaneous
  Country: CA (occurrence: CA)
  Receive Date: 20231011
  Receipt Date: 20231011
  Transmission Date: 20240110
  Serious: Yes (Hospitalization, Other)
  Sender: FDA-Public Use
  Company Number: CA-drreddys-SPO/CAN/23/0179352

PATIENT
  Age: 63 Year
  Sex: Female

DRUGS (12)
  1. BORTEZOMIB [Suspect]
     Active Substance: BORTEZOMIB
     Indication: Plasma cell myeloma
  2. LENALIDOMIDE [Suspect]
     Active Substance: LENALIDOMIDE
     Indication: Plasma cell myeloma
     Route: 048
  3. CYCLOPHOSPHAMIDE [Suspect]
     Active Substance: CYCLOPHOSPHAMIDE
     Indication: Plasma cell myeloma
  4. DEXAMETHASONE [Suspect]
     Active Substance: DEXAMETHASONE
     Indication: Plasma cell myeloma
  5. ZOMETA [Suspect]
     Active Substance: ZOLEDRONIC ACID
     Indication: Plasma cell myeloma
     Route: 042
  6. ACYCLOVIR [Concomitant]
     Active Substance: ACYCLOVIR
     Indication: Product used for unknown indication
  7. MELPHALAN [Concomitant]
     Active Substance: MELPHALAN
     Indication: Plasma cell myeloma
  8. ONDANSETRON [Concomitant]
     Active Substance: ONDANSETRON
     Indication: Product used for unknown indication
  9. REVLIMID [Concomitant]
     Active Substance: LENALIDOMIDE
     Indication: Plasma cell myeloma
  10. REVLIMID [Concomitant]
     Active Substance: LENALIDOMIDE
  11. PROCHLORPERAZINE [Concomitant]
     Active Substance: PROCHLORPERAZINE
     Indication: Product used for unknown indication
  12. VELCADE [Concomitant]
     Active Substance: BORTEZOMIB
     Indication: Plasma cell myeloma
     Route: 042

REACTIONS (9)
  - Monoclonal immunoglobulin increased [Not Recovered/Not Resolved]
  - Pelvic abscess [Not Recovered/Not Resolved]
  - Plasma cell myeloma refractory [Not Recovered/Not Resolved]
  - Anaemia [Not Recovered/Not Resolved]
  - Anxiety [Not Recovered/Not Resolved]
  - Dyspepsia [Not Recovered/Not Resolved]
  - Febrile neutropenia [Not Recovered/Not Resolved]
  - Intestinal perforation [Not Recovered/Not Resolved]
  - Small intestinal obstruction [Not Recovered/Not Resolved]
